FAERS Safety Report 17284922 (Version 2)
Quarter: 2020Q1

REPORT INFORMATION
  Report Type: Spontaneous
  Country: US (occurrence: US)
  Receive Date: 20200117
  Receipt Date: 20200122
  Transmission Date: 20200409
  Serious: Yes (Hospitalization, Other)
  Sender: FDA-Public Use
  Company Number: US-PFIZER INC-2016254133

PATIENT
  Age: 73 Year
  Sex: Female

DRUGS (19)
  1. LYRICA [Suspect]
     Active Substance: PREGABALIN
     Dosage: 75 MG, 2X/DAY
     Route: 048
     Dates: start: 20170413
  2. BIOTIN [Concomitant]
     Active Substance: BIOTIN
     Dosage: 10000 MG, UNK,(TAKE 10,000 MG BY MOUTH)
     Route: 048
  3. VITAMIN E [Concomitant]
     Active Substance: .ALPHA.-TOCOPHEROL
     Dosage: 400 IU, DAILY
     Route: 048
  4. DESYREL [Concomitant]
     Active Substance: TRAZODONE HYDROCHLORIDE
     Dosage: 50 MG, 1X/DAY,(TAKE 1 TABLET BY MOUTH NIGHTLY FOR 30 DAYS. TAKE 1/2 TO TABLET AT BEDTIME)
     Route: 048
  5. LYRICA [Suspect]
     Active Substance: PREGABALIN
     Indication: FIBROMYALGIA
     Dosage: 75 MG, 2X/DAY
     Route: 048
     Dates: start: 20061014
  6. ASPIRIN [ACETYLSALICYLIC ACID] [Concomitant]
     Active Substance: ASPIRIN
     Dosage: 81 MG, DAILY
     Route: 048
  7. ZOCOR [Concomitant]
     Active Substance: SIMVASTATIN
     Dosage: 20 MG, UNK
  8. ALLEGRA [Concomitant]
     Active Substance: FEXOFENADINE HYDROCHLORIDE
     Dosage: 180 MG, AS NEEDED,(PATIENT TAKING DIFFERENTLY: TAKE ONE TABLET BY MOUTH EVERY MORNING AS NEEDED)
     Route: 048
  9. ATIVAN [Concomitant]
     Active Substance: LORAZEPAM
     Indication: ANXIETY
     Dosage: 0.5 MG, AS NEEDED,(TAKE 1 TABLET BY MOUTH NIGHTLY AS NEEDED FOR ANXIETY)
     Route: 048
  10. VITAMIN C [Concomitant]
     Active Substance: ASCORBIC ACID
     Dosage: 500 MG, DAILY
     Route: 048
  11. B COMPLEX [VITAMIN B COMPLEX] [Concomitant]
     Dosage: 1 DF, DAILY,(TAKE 1 CAPSULE BY MOUTH DAILY)
     Route: 048
  12. BENADRYL [Concomitant]
     Active Substance: DIPHENHYDRAMINE HYDROCHLORIDE
     Dosage: 50 MG, AS NEEDED,(TAKE ONE PILL BY MOUTH NIGHTLY AS NEEDED)
     Route: 048
  13. GARLIC [ALLIUM SATIVUM] [Concomitant]
     Active Substance: GARLIC
     Dosage: 1000 MG, UNK,(TAKE BY MOUTH
     Route: 048
  14. PRILOSEC [Concomitant]
     Active Substance: OMEPRAZOLE MAGNESIUM
     Dosage: 20 MG, DAILY,(TAKE 1 CAPSULE BY MOUTH DAILY)
     Route: 048
  15. LYRICA [Suspect]
     Active Substance: PREGABALIN
     Dosage: 75 MG, 2X/DAY
     Route: 048
  16. ULTRAM [Concomitant]
     Active Substance: TRAMADOL HYDROCHLORIDE
     Indication: PAIN
     Dosage: 50 MG, AS NEEDED,(TAKE 50 MG BY MOUTH EVERY 8 HOURS AS NEEDED/TAKES TWO EVERY MORNING AND SOMETIMES
     Route: 048
  17. ARISTOCORT [TRIAMCINOLONE] [Concomitant]
     Indication: PRURITUS
     Dosage: UNK, AS NEEDED,(APPLY TOPICALLY 2 (TWO) TIMES DAILY. AS NEEDED FOR ITCHING USE SPARINGLY, AVOID FAC)
     Route: 061
  18. LYRICA [Suspect]
     Active Substance: PREGABALIN
     Indication: INTERVERTEBRAL DISC DEGENERATION
     Dosage: 75 MG, 2X/DAY
     Route: 048
     Dates: start: 20160411
  19. VITAMIN D3 [Concomitant]
     Active Substance: CHOLECALCIFEROL
     Dosage: 800 IU, DAILY
     Route: 048

REACTIONS (3)
  - Hypertension [Unknown]
  - Body height decreased [Unknown]
  - Cerebrovascular accident [Recovering/Resolving]

NARRATIVE: CASE EVENT DATE: 20191030
